FAERS Safety Report 4737027-6 (Version None)
Quarter: 2005Q3

REPORT INFORMATION
  Report Type: 
  Country: None (occurrence: None)
  Receive Date: 20050808
  Receipt Date: 20050726
  Transmission Date: 20060218
  Serious: Yes (Hospitalization)
  Sender: FDA-Public Use
  Company Number: 2005AP04071

PATIENT
  Age: 55 Year
  Sex: Male

DRUGS (9)
  1. PROPOFOL [Suspect]
     Indication: SENSORY DISTURBANCE
  2. REMIFENTANIL HYDROCHLORIDE [Suspect]
     Indication: SENSORY DISTURBANCE
     Route: 042
  3. ROCURONIUM BROMIDE [Suspect]
     Indication: SENSORY DISTURBANCE
  4. CEPHALOTHIN SODIUM [Suspect]
     Indication: SENSORY DISTURBANCE
  5. HYDROCORTISONE [Suspect]
     Indication: SENSORY DISTURBANCE
  6. GELOFUSINE [Suspect]
     Indication: SENSORY DISTURBANCE
  7. VALPROATE SODIUM [Concomitant]
  8. DEXAMETHASONE [Concomitant]
  9. CITALOPRAM HYDROBROMIDE [Concomitant]

REACTIONS (4)
  - ANAPHYLACTIC REACTION [None]
  - CARDIAC ARREST [None]
  - ELECTROMECHANICAL DISSOCIATION [None]
  - HYPOTENSION [None]
